FAERS Safety Report 10907402 (Version 3)
Quarter: 2015Q2

REPORT INFORMATION
  Report Type: Spontaneous
  Country: BR (occurrence: BR)
  Receive Date: 20150312
  Receipt Date: 20150506
  Transmission Date: 20150821
  Serious: Yes (Death, Hospitalization)
  Sender: FDA-Public Use
  Company Number: BR-SA-2015SA028535

PATIENT
  Sex: Male

DRUGS (1)
  1. MYOZYME [Suspect]
     Active Substance: ALGLUCOSIDASE ALFA
     Indication: GLYCOGEN STORAGE DISEASE TYPE II
     Route: 041
     Dates: end: 2015

REACTIONS (9)
  - Increased bronchial secretion [Unknown]
  - Cardiac arrest [Fatal]
  - General physical health deterioration [Unknown]
  - Pyrexia [Not Recovered/Not Resolved]
  - Hiccups [Unknown]
  - Cardio-respiratory arrest [Recovering/Resolving]
  - Tracheostomy [Recovering/Resolving]
  - Gastrostomy [Recovering/Resolving]
  - Heart rate increased [Unknown]

NARRATIVE: CASE EVENT DATE: 2015
